FAERS Safety Report 6156212-2 (Version None)
Quarter: 2009Q2

REPORT INFORMATION
  Report Type: 
  Country: None (occurrence: None)
  Receive Date: 20090415
  Receipt Date: 20090403
  Transmission Date: 20091009
  Serious: Yes (Other)
  Sender: FDA-Public Use
  Company Number: FR-PFIZER INC-2009194128

PATIENT

DRUGS (1)
  1. CHAMPIX [Suspect]
     Dosage: UNK
     Dates: start: 20081201, end: 20090102

REACTIONS (4)
  - BLOOD CREATINE PHOSPHOKINASE INCREASED [None]
  - IRRITABILITY [None]
  - MYALGIA [None]
  - SLEEP DISORDER [None]
